FAERS Safety Report 4610793-6 (Version None)
Quarter: 2005Q2

REPORT INFORMATION
  Report Type: 
  Country: None (occurrence: None)
  Receive Date: 20050223
  Receipt Date: 20040422
  Transmission Date: 20051028
  Serious: Yes (Hospitalization)
  Sender: FDA-Public Use
  Company Number: WAES0310USA00328

PATIENT
  Age: 35 Year
  Sex: Male
  Weight: 128.8216 kg

DRUGS (5)
  1. ZOCOR [Suspect]
     Indication: DYSLIPIDAEMIA
     Dosage: 20; 80 MG/ DAILY/ PO
     Route: 048
     Dates: start: 20000601, end: 20001113
  2. ACCUPRIL [Concomitant]
  3. LOPRESSOR [Concomitant]
  4. ZANTAC [Concomitant]
  5. . [Concomitant]

REACTIONS (15)
  - ALANINE AMINOTRANSFERASE INCREASED [None]
  - ARTHRALGIA [None]
  - ASPARTATE AMINOTRANSFERASE INCREASED [None]
  - BACK PAIN [None]
  - BLOOD CREATINE PHOSPHOKINASE INCREASED [None]
  - BLOOD THYROID STIMULATING HORMONE INCREASED [None]
  - FATIGUE [None]
  - INFLAMMATION [None]
  - MYALGIA [None]
  - MYOPATHY [None]
  - NEUROPATHY [None]
  - OEDEMA PERIPHERAL [None]
  - PAIN [None]
  - THYROXINE DECREASED [None]
  - THYROXINE FREE DECREASED [None]
